FAERS Safety Report 7429341-0 (Version None)
Quarter: 2011Q2

REPORT INFORMATION
  Report Type: 
  Country: None (occurrence: None)
  Receive Date: 20110421
  Receipt Date: 20110412
  Transmission Date: 20111010
  Serious: Yes (Other)
  Sender: FDA-Public Use
  Company Number: JP-BAXTER-2011BH008217

PATIENT

DRUGS (2)
  1. ACETYLSALICYLIC ACID SRT [Concomitant]
     Indication: KAWASAKI'S DISEASE
     Route: 048
  2. IMMUNE GLOBULIN INTRAVENOUS (HUMAN) [Suspect]
     Indication: KAWASAKI'S DISEASE
     Route: 042

REACTIONS (2)
  - CORONARY ARTERY ANEURYSM [None]
  - DRUG INEFFECTIVE [None]
